FAERS Safety Report 21907353 (Version 4)
Quarter: 2023Q2

REPORT INFORMATION
  Report Type: Other
  Country: US (occurrence: None)
  Receive Date: 20230125
  Receipt Date: 20230503
  Transmission Date: 20230721
  Serious: Yes (Hospitalization)
  Sender: FDA-Public Use
  Company Number: US-ROCHE-3270182

PATIENT
  Age: 72 Year
  Sex: Male

DRUGS (18)
  1. OCREVUS [Suspect]
     Active Substance: OCRELIZUMAB
     Indication: Relapsing multiple sclerosis
     Dosage: NO
     Route: 065
  2. AUBAGIO [Concomitant]
     Active Substance: TERIFLUNOMIDE
  3. ACETAMINOPHEN [Concomitant]
     Active Substance: ACETAMINOPHEN
     Dosage: TAKE 2 TABLETS 1000 MG BY MOUTH EVERY 6 HOURS IF NEEDED
  4. ATORVASTATIN [Concomitant]
     Active Substance: ATORVASTATIN
     Dosage: TAKE 1 TABLET BY MOUTH AT BEDTIME 20 MG
  5. CARBAMAZEPINE [Concomitant]
     Active Substance: CARBAMAZEPINE
     Dosage: TAKE 1 TABLET 200 MG 60 TABLET BY MOUTH 2 TIMES A DAY
  6. CHOLECALCIFEROL [Concomitant]
     Active Substance: CHOLECALCIFEROL
     Dosage: TAKE 1 TABLET BY MOUTH ONCE DAILY
  7. CYANOCOBALAMIN [Concomitant]
     Active Substance: CYANOCOBALAMIN
     Dosage: TAKE 1 TABLET BY MOUTH ONCE DAILY
  8. ESZOPICLONE [Concomitant]
     Active Substance: ESZOPICLONE
     Dosage: TAKE 1 TABLET 3 MG BY 30 TABLET MOUTH IF NEEDED AT BEDTIME
  9. FLUTICASONE [Concomitant]
     Active Substance: FLUTICASONE
     Dosage: ADMINISTER 2 SPRAYS INTO EACH NOSTRIL 2 TIMES A DAY
  10. LEVOTHYROXINE [Concomitant]
     Active Substance: LEVOTHYROXINE
     Dosage: TAKE 1 TABLET BY MOUTH ONE TIME DAILY 125 MCG
  11. METOPROLOL SUCCINATE [Concomitant]
     Active Substance: METOPROLOL SUCCINATE
     Dosage: TAKE 1 TABLET 25 MG BY MOUTH ONCE DAILY
  12. NITROGLYCERIN [Concomitant]
     Active Substance: NITROGLYCERIN
     Dosage: PLACE 1 TABLET 0.4 MG UNDER THE TONGUE EVERY 5 MINUTES IF NEEDED
  13. POTASSIUM CITRATE [Concomitant]
     Active Substance: POTASSIUM CITRATE
     Dosage: TAKE 1 TABLET BY MOUTH ONCE DAILY
  14. PREGABALIN [Concomitant]
     Active Substance: PREGABALIN
     Dosage: TAKE 1 CAPSULE 100 MG BY MOUTH IN THE MORNING AT NOON AND AT BEDTIME
  15. PRIMIDONE [Concomitant]
     Active Substance: PRIMIDONE
     Dosage: TAKE 1 TABLET PO AT BEDTIME FOR A WEEK 50 MG THEN 1 TABLET PO BID
  16. SERTRALINE [Concomitant]
     Active Substance: SERTRALINE HYDROCHLORIDE
     Dosage: TAKE 1 TABLET 50 MG BY MOUTH ONCE DAILY
  17. TIZANIDINE [Concomitant]
     Active Substance: TIZANIDINE
     Dosage: TAKE 1 TABLET 4 MG BY 60 TABLET MOUTH 2 TIMES A DAY
  18. TRAMADOL [Concomitant]
     Active Substance: TRAMADOL
     Dosage: TAKE 1 TABLET 50 MG BY MOUTH EVERY 6 HOURS

REACTIONS (5)
  - Urinary tract infection [Not Recovered/Not Resolved]
  - Dizziness [Unknown]
  - Discomfort [Unknown]
  - Asthenia [Unknown]
  - Nephrolithiasis [Not Recovered/Not Resolved]
